FAERS Safety Report 6585453-5 (Version None)
Quarter: 2010Q1

REPORT INFORMATION
  Report Type: 
  Country: None (occurrence: None)
  Receive Date: 20100217
  Receipt Date: 20100215
  Transmission Date: 20100710
  Serious: Yes (Death, Life-Threatening, Hospitalization)
  Sender: FDA-Public Use
  Company Number: D0066486A

PATIENT
  Sex: Male

DRUGS (15)
  1. SULTANOL [Suspect]
     Indication: PULMONARY FIBROSIS
     Route: 055
     Dates: start: 20070711
  2. TAVANIC [Suspect]
     Indication: PNEUMONIA
     Dosage: 500MG PER DAY
     Route: 048
     Dates: start: 20070730, end: 20070802
  3. ATROVENT [Suspect]
     Indication: PULMONARY FIBROSIS
     Route: 055
     Dates: start: 20070711, end: 20070802
  4. NEXIUM [Suspect]
     Indication: PROPHYLAXIS
     Dosage: 20MG PER DAY
     Route: 048
     Dates: start: 20070703, end: 20070802
  5. MELPERON [Suspect]
     Indication: SEDATION
     Dosage: 5ML AT NIGHT
     Route: 048
     Dates: start: 20070711, end: 20070802
  6. AMPHOTERICIN B [Suspect]
     Indication: CANDIDIASIS
     Dosage: 1ML FOUR TIMES PER DAY
     Route: 061
     Dates: start: 20070717
  7. DECORTIN H [Suspect]
     Indication: PULMONARY FIBROSIS
     Route: 048
     Dates: start: 20070707
  8. MCP [Suspect]
     Indication: NAUSEA
     Dosage: 10DROP PER DAY
     Route: 048
     Dates: start: 20070726, end: 20070802
  9. DIFLUCAN [Suspect]
     Indication: STOMATITIS
     Dosage: 200MG PER DAY
     Route: 048
     Dates: start: 20070730, end: 20070802
  10. FLUCONAZOLE [Suspect]
     Indication: CANDIDIASIS
     Dosage: 200MG PER DAY
     Route: 048
     Dates: start: 20070803, end: 20070811
  11. MARCUMAR [Suspect]
     Indication: THROMBOSIS PROPHYLAXIS
     Route: 048
     Dates: start: 20070803
  12. SPIRIVA [Suspect]
     Indication: CHRONIC OBSTRUCTIVE PULMONARY DISEASE
     Dosage: 18MCG PER DAY
     Route: 055
     Dates: start: 20070803
  13. OMEPRAZOL [Suspect]
     Indication: PROPHYLAXIS
     Route: 048
     Dates: start: 20070803
  14. MULTIPLE MEDICATION [Suspect]
     Route: 065
  15. MULTIPLE MEDICATION [Concomitant]
     Route: 065

REACTIONS (18)
  - ANAL EROSION [None]
  - BLISTER [None]
  - CANDIDIASIS [None]
  - CHRONIC OBSTRUCTIVE PULMONARY DISEASE [None]
  - COUGH [None]
  - GASTRITIS [None]
  - GENITAL EROSION [None]
  - LIP EROSION [None]
  - NAUSEA [None]
  - NIKOLSKY'S SIGN [None]
  - OCULAR HYPERAEMIA [None]
  - ORAL MUCOSA EROSION [None]
  - PRURITUS [None]
  - PYREXIA [None]
  - RASH GENERALISED [None]
  - RASH MACULAR [None]
  - STOMATITIS [None]
  - TOXIC EPIDERMAL NECROLYSIS [None]
